FAERS Safety Report 6129330-2 (Version None)
Quarter: 2009Q1

REPORT INFORMATION
  Report Type: 
  Country: None (occurrence: None)
  Receive Date: 20090320
  Receipt Date: 20090310
  Transmission Date: 20090719
  Serious: Yes (Hospitalization)
  Sender: FDA-Public Use
  Company Number: 2009-193061-NL

PATIENT
  Age: 29 Year
  Sex: Female

DRUGS (5)
  1. CHORIONIC GONADTROPIN [Suspect]
     Indication: OVULATION INDUCTION
     Dosage: DF
  2. ORAL CONTRACEPTIVE NOS [Concomitant]
  3. CLOMIFENE [Concomitant]
  4. FOLLITROPIN ALFA [Concomitant]
  5. PROGESTERONE [Concomitant]

REACTIONS (9)
  - ADHESION [None]
  - ALOPECIA [None]
  - BENIGN HYDATIDIFORM MOLE [None]
  - DIARRHOEA [None]
  - DRY SKIN [None]
  - FREQUENT BOWEL MOVEMENTS [None]
  - OVARIAN CYST [None]
  - SUBILEUS [None]
  - WEIGHT DECREASED [None]
